FAERS Safety Report 25100016 (Version 1)
Quarter: 2025Q1

REPORT INFORMATION
  Report Type: Spontaneous
  Country: US (occurrence: US)
  Receive Date: 20250320
  Receipt Date: 20250320
  Transmission Date: 20250409
  Serious: Yes (Other)
  Sender: PFIZER
  Company Number: US-PFIZER INC-202500059366

PATIENT
  Age: 69 Year
  Sex: Female

DRUGS (8)
  1. AZITHROMYCIN [Interacting]
     Active Substance: AZITHROMYCIN
     Indication: Pulmonary cavitation
     Dosage: UNK, DAILY
     Dates: start: 202308, end: 202310
  2. AZITHROMYCIN [Interacting]
     Active Substance: AZITHROMYCIN
     Dates: start: 202310
  3. RIFAMPIN [Interacting]
     Active Substance: RIFAMPIN
     Indication: Pulmonary cavitation
     Dosage: UNK, DAILY
     Dates: start: 202308, end: 202310
  4. RIFAMPIN [Interacting]
     Active Substance: RIFAMPIN
     Dates: start: 202310
  5. ETHAMBUTOL [Interacting]
     Active Substance: ETHAMBUTOL HYDROCHLORIDE
     Indication: Pulmonary cavitation
     Dosage: UNK, DAILY
     Dates: start: 202308, end: 202310
  6. ETHAMBUTOL [Interacting]
     Active Substance: ETHAMBUTOL HYDROCHLORIDE
     Dates: start: 202310
  7. AMIKACIN [Interacting]
     Active Substance: AMIKACIN
     Indication: Pulmonary cavitation
     Route: 042
     Dates: start: 202308, end: 202310
  8. AMIKACIN [Interacting]
     Active Substance: AMIKACIN
     Dosage: UNK, 2X/WEEK
     Route: 042

REACTIONS (2)
  - Myocardial infarction [Unknown]
  - Drug interaction [Unknown]

NARRATIVE: CASE EVENT DATE: 20230101
